FAERS Safety Report 21563452 (Version 1)
Quarter: 2022Q4

REPORT INFORMATION
  Report Type: Spontaneous
  Country: US (occurrence: US)
  Receive Date: 20221108
  Receipt Date: 20221108
  Transmission Date: 20230113
  Serious: No
  Sender: FDA-Public Use
  Company Number: US-Accord-245013

PATIENT
  Age: 84 Year
  Sex: Female

DRUGS (2)
  1. HYDROCHLOROTHIAZIDE [Suspect]
     Active Substance: HYDROCHLOROTHIAZIDE
     Indication: Product used for unknown indication
     Dosage: STRENGTH: 12.5MG , TWO TABLETS PER DAY
  2. HYDROCHLOROTHIAZIDE [Suspect]
     Active Substance: HYDROCHLOROTHIAZIDE
     Indication: Product used for unknown indication
     Dosage: STRENGTH: 25MG  , PER DAY

REACTIONS (8)
  - Pigmentation disorder [Unknown]
  - Skin swelling [Not Recovered/Not Resolved]
  - Eye pain [Unknown]
  - Dizziness [Unknown]
  - Headache [Unknown]
  - Constipation [Unknown]
  - Blood cholesterol increased [Unknown]
  - Low density lipoprotein increased [Unknown]
